FAERS Safety Report 9088216 (Version 1)
Quarter: 2013Q1

REPORT INFORMATION
  Report Type: Report from Study
  Country: US (occurrence: US)
  Receive Date: 20130131
  Receipt Date: 20130131
  Transmission Date: 20140127
  Serious: No
  Sender: FDA-Public Use
  Company Number: US-ABBOTT-12P-163-0997962-00

PATIENT
  Age: 60 Year
  Sex: Male

DRUGS (1)
  1. HUMIRA [Suspect]
     Indication: PRODUCT USED FOR UNKNOWN INDICATION
     Route: 058
     Dates: start: 2010

REACTIONS (6)
  - Back injury [Recovered/Resolved]
  - Ligament sprain [Recovering/Resolving]
  - Intervertebral disc protrusion [Recovering/Resolving]
  - Joint swelling [Recovering/Resolving]
  - Arthritis [Recovering/Resolving]
  - Back pain [Recovering/Resolving]
